FAERS Safety Report 5628023-5 (Version None)
Quarter: 2008Q1

REPORT INFORMATION
  Report Type: 
  Country: None (occurrence: None)
  Receive Date: 20080215
  Receipt Date: 20080207
  Transmission Date: 20080703
  Serious: Yes (Hospitalization)
  Sender: FDA-Public Use
  Company Number: US-ELI_LILLY_AND_COMPANY-US200802001839

PATIENT
  Sex: Male

DRUGS (1)
  1. HUMULIN N [Suspect]

REACTIONS (6)
  - ARTHROPATHY [None]
  - ASTHENIA [None]
  - GAIT DISTURBANCE [None]
  - HOSPITALISATION [None]
  - NEUROPATHY PERIPHERAL [None]
  - RHEUMATOID ARTHRITIS [None]
